FAERS Safety Report 7810874-X (Version None)
Quarter: 2011Q4

REPORT INFORMATION
  Report Type: 
  Country: None (occurrence: None)
  Receive Date: 20111012
  Receipt Date: 20111012
  Transmission Date: 20120403
  Serious: Yes (Death)
  Sender: FDA-Public Use
  Company Number: None

PATIENT

DRUGS (1)
  1. TRAMADOL HCL [Suspect]

REACTIONS (3)
  - HYPERSENSITIVITY [None]
  - CEREBROVASCULAR ACCIDENT [None]
  - TABLET PHYSICAL ISSUE [None]
